FAERS Safety Report 25900819 (Version 1)
Quarter: 2025Q4

REPORT INFORMATION
  Report Type: Report from Study
  Country: IL (occurrence: IL)
  Receive Date: 20251009
  Receipt Date: 20251009
  Transmission Date: 20260117
  Serious: Yes (Other)
  Sender: ABBVIE
  Company Number: IL-ABBVIE-6488880

PATIENT
  Age: 75 Year
  Sex: Male

DRUGS (3)
  1. CARBIDOPA\LEVODOPA [Suspect]
     Active Substance: CARBIDOPA\LEVODOPA
     Indication: Parkinson^s disease
     Dosage: ADDITIONAL TUBE FILING 3 ML?CONTINUOUS DOSAGE 4.2 ML/H?EXTRA DOSAGE 2 ML
     Route: 050
     Dates: start: 20170318
  2. CARBIDOPA\LEVODOPA [Suspect]
     Active Substance: CARBIDOPA\LEVODOPA
     Dosage: ADDITIONAL TUBE FILING 3 ML?CONTINUOUS DOSAGE 4.2 ML/H?EXTRA DOSAGE 2 ML?THERAPY DURATION REMAINS 16
     Route: 050
     Dates: start: 20241106, end: 20241107
  3. CARBIDOPA\LEVODOPA [Suspect]
     Active Substance: CARBIDOPA\LEVODOPA
     Dosage: ADDITIONAL TUBE FILING 3 ML?CONTINUOUS DOSAGE 4.2 ML/H?EXTRA DOSAGE 2 ML?THERAPY DURATION REMAINS 24
     Route: 050
     Dates: start: 20250202, end: 20250202

REACTIONS (2)
  - Blindness [Unknown]
  - Glaucoma [Unknown]

NARRATIVE: CASE EVENT DATE: 20250101
